FAERS Safety Report 10368409 (Version 1)
Quarter: 2014Q3

REPORT INFORMATION
  Report Type: Spontaneous
  Country: BR (occurrence: BR)
  Receive Date: 20140807
  Receipt Date: 20140807
  Transmission Date: 20150326
  Serious: Yes (Hospitalization)
  Sender: FDA-Public Use
  Company Number: BR-ELI_LILLY_AND_COMPANY-BR201407010182

PATIENT
  Age: 18 Year
  Sex: Female
  Weight: 51 kg

DRUGS (4)
  1. INSULINE GLARGINE [Concomitant]
     Indication: DIABETES MELLITUS MANAGEMENT
     Dosage: 52 IU, EACH MORNING
     Route: 065
  2. SINVASTATINA [Concomitant]
     Indication: PROTEIN URINE
     Dosage: 1 DF, EACH EVENING
     Route: 065
     Dates: start: 201403
  3. HUMALOG [Suspect]
     Active Substance: INSULIN LISPRO
     Indication: TYPE 1 DIABETES MELLITUS
     Dosage: UNK UNK, OTHER
     Route: 058
     Dates: start: 2012
  4. NALAPRIL [Concomitant]
     Indication: BLOOD CHOLESTEROL
     Dosage: 1 DF, EACH MORNING
     Route: 065
     Dates: start: 201403

REACTIONS (11)
  - Vomiting [Unknown]
  - Coagulation time shortened [Unknown]
  - Malaise [Unknown]
  - Paraesthesia [Not Recovered/Not Resolved]
  - Diabetic ketoacidosis [Unknown]
  - Frequent bowel movements [Unknown]
  - Immune system disorder [Not Recovered/Not Resolved]
  - Injection site bruising [Unknown]
  - Vision blurred [Not Recovered/Not Resolved]
  - Visual impairment [Not Recovered/Not Resolved]
  - Arrhythmia [Unknown]

NARRATIVE: CASE EVENT DATE: 20140709
